FAERS Safety Report 15460557 (Version 1)
Quarter: 2018Q4

REPORT INFORMATION
  Report Type: Spontaneous
  Country: DE (occurrence: DE)
  Receive Date: 20181003
  Receipt Date: 20181003
  Transmission Date: 20190204
  Serious: Yes (Death, Other)
  Sender: FDA-Public Use
  Company Number: DE-MYLANLABS-2018M1071496

PATIENT
  Sex: Female

DRUGS (1)
  1. PACLITAXEL. [Suspect]
     Active Substance: PACLITAXEL
     Indication: BREAST CANCER
     Dosage: 150 MG/M2, WEEKLY
     Route: 065

REACTIONS (1)
  - Respiratory failure [Fatal]
